FAERS Safety Report 11286362 (Version 1)
Quarter: 2015Q3

REPORT INFORMATION
  Report Type: Spontaneous
  Country: US (occurrence: None)
  Receive Date: 20150717
  Receipt Date: 20150717
  Transmission Date: 20151125
  Serious: Yes (Other)
  Sender: FDA-Public Use
  Company Number: US-2015VAL000459

PATIENT
  Age: 31 Year
  Sex: Female

DRUGS (1)
  1. BROMOCRIPTINE MESYLATE (BROMOCRIPTINE MESYLATE) UNKNOWN [Suspect]
     Active Substance: BROMOCRIPTINE MESYLATE
     Indication: PROLACTINOMA
     Dosage: 5 MG, QD

REACTIONS (1)
  - Blood prolactin increased [None]
